FAERS Safety Report 8234824-X (Version None)
Quarter: 2012Q1

REPORT INFORMATION
  Report Type: 
  Country: None (occurrence: None)
  Receive Date: 20120326
  Receipt Date: 20120313
  Transmission Date: 20120608
  Serious: Yes (Hospitalization, Other)
  Sender: FDA-Public Use
  Company Number: AT-ROCHE-1035300

PATIENT
  Age: 42 Year
  Sex: Female
  Weight: 59 kg

DRUGS (4)
  1. VEMURAFENIB [Suspect]
     Route: 048
     Dates: start: 20120203
  2. VEMURAFENIB [Suspect]
     Indication: METASTATIC MALIGNANT MELANOMA
     Route: 048
     Dates: start: 20120118, end: 20120127
  3. VEMURAFENIB [Suspect]
     Route: 048
     Dates: start: 20120127, end: 20120203
  4. VEMURAFENIB [Suspect]
     Dosage: LAST DOSE PRIOR TO SAE 12/MAR/2012
     Route: 048
     Dates: start: 20120215

REACTIONS (2)
  - ARTHRALGIA [None]
  - OTITIS EXTERNA [None]
